FAERS Safety Report 4604049-5 (Version None)
Quarter: 2005Q1

REPORT INFORMATION
  Report Type: 
  Country: None (occurrence: None)
  Receive Date: 20050310
  Receipt Date: 20050302
  Transmission Date: 20050727
  Serious: Yes (Hospitalization)
  Sender: FDA-Public Use
  Company Number: PHBS2005NO03165

PATIENT
  Age: 36 Year
  Sex: Female

DRUGS (1)
  1. VOLTAREN [Suspect]
     Dosage: 1 DF, ONCE/SINGLE
     Dates: start: 20040203, end: 20040203

REACTIONS (3)
  - INJECTION SITE NECROSIS [None]
  - TRANSPLANT [None]
  - VENA CAVA THROMBOSIS [None]
